FAERS Safety Report 14304449 (Version 1)
Quarter: 2017Q4

REPORT INFORMATION
  Report Type: Spontaneous
  Country: JP (occurrence: JP)
  Receive Date: 20171219
  Receipt Date: 20171219
  Transmission Date: 20180321
  Serious: Yes (Other)
  Sender: FDA-Public Use
  Company Number: JP-OTSUKA-005227

PATIENT
  Age: 42 Year
  Sex: Male
  Weight: 75.5 kg

DRUGS (3)
  1. TASMOLIN [Concomitant]
     Active Substance: BIPERIDEN
     Indication: PROPHYLAXIS
     Dosage: 1 MG, TID
     Route: 048
     Dates: start: 20070105
  2. ABILIFY [Suspect]
     Active Substance: ARIPIPRAZOLE
     Indication: SCHIZOPHRENIA
     Dosage: 6 MG, TID
     Route: 048
     Dates: start: 20070126, end: 20090224
  3. DEPAKENE [Concomitant]
     Active Substance: VALPROIC ACID
     Indication: ANXIETY
     Dosage: 200 MG, TID
     Route: 048
     Dates: start: 20070105

REACTIONS (1)
  - Glucose tolerance impaired [Not Recovered/Not Resolved]

NARRATIVE: CASE EVENT DATE: 20081118
